FAERS Safety Report 15028623 (Version 1)
Quarter: 2018Q2

REPORT INFORMATION
  Report Type: Spontaneous
  Country: US (occurrence: US)
  Receive Date: 20180619
  Receipt Date: 20180619
  Transmission Date: 20180711
  Serious: No
  Sender: FDA-Public Use
  Company Number: PHEH2018US024257

PATIENT
  Age: 37 Year
  Sex: Male
  Weight: 188 kg

DRUGS (1)
  1. SANDOSTATIN LAR DEPOT [Suspect]
     Active Substance: OCTREOTIDE ACETATE
     Indication: PRODUCT USED FOR UNKNOWN INDICATION
     Dosage: 30 MG, Q2W (EVERY 2 WEEKS)
     Route: 065

REACTIONS (1)
  - Inappropriate schedule of drug administration [Unknown]
